FAERS Safety Report 6925279-3 (Version None)
Quarter: 2010Q3

REPORT INFORMATION
  Report Type: 
  Country: None (occurrence: None)
  Receive Date: 20100816
  Receipt Date: 20100811
  Transmission Date: 20110219
  Serious: Yes (Other)
  Sender: FDA-Public Use
  Company Number: DE-BRISTOL-MYERS SQUIBB COMPANY-15237753

PATIENT
  Age: 69 Year
  Sex: Male

DRUGS (2)
  1. APROVEL FILM-COATED TABS 300 MG [Suspect]
     Indication: BLOOD PRESSURE INCREASED
     Route: 048
  2. LANTUS [Concomitant]
     Indication: TYPE 2 DIABETES MELLITUS

REACTIONS (4)
  - BLOOD PRESSURE SYSTOLIC INCREASED [None]
  - CARDIAC DISCOMFORT [None]
  - MYALGIA [None]
  - VOMITING [None]
